FAERS Safety Report 9074559 (Version 1)
Quarter: 2013Q1

REPORT INFORMATION
  Report Type: Report from Study
  Country: US (occurrence: US)
  Receive Date: 20130128
  Receipt Date: 20130128
  Transmission Date: 20140127
  Serious: No
  Sender: FDA-Public Use
  Company Number: US-ABBOTT-12P-163-0915514-00

PATIENT
  Age: 55 None
  Sex: Male
  Weight: 86.26 kg

DRUGS (9)
  1. HUMIRA 40 MG/0.8 ML PEN [Suspect]
     Indication: PSORIASIS
     Dates: start: 20120222, end: 20120222
  2. HUMIRA 40 MG/0.8 ML PEN [Suspect]
     Dates: start: 20120229
  3. ZYRTEC [Concomitant]
     Indication: HYPERSENSITIVITY
     Dosage: 10 MG BEDTIME
     Route: 048
  4. FEXOFENADINE [Concomitant]
     Indication: HYPERSENSITIVITY
  5. ASPIRIN [Concomitant]
     Indication: PRODUCT USED FOR UNKNOWN INDICATION
     Dosage: DAILY
     Route: 048
  6. ALEVE [Concomitant]
     Indication: PAIN
     Dosage: AS NEEDED
     Route: 048
  7. IPRATROPIUM BROMIDE [Concomitant]
     Indication: HYPERSENSITIVITY
  8. ALBUTEROL SULFATE [Concomitant]
     Indication: HYPERSENSITIVITY
  9. UNKNOWN ALLERGY SHOTS [Concomitant]
     Indication: HYPERSENSITIVITY
     Dosage: TWO SHOTS, ONCE EVERY TWO WEEKS

REACTIONS (4)
  - Paraesthesia [Recovered/Resolved]
  - Wrong technique in drug usage process [Recovered/Resolved]
  - Drug administered at inappropriate site [Recovered/Resolved]
  - Injection site haemorrhage [Recovered/Resolved]
